FAERS Safety Report 21424241 (Version 1)
Quarter: 2022Q4

REPORT INFORMATION
  Report Type: Spontaneous
  Country: BR (occurrence: BR)
  Receive Date: 20221007
  Receipt Date: 20221007
  Transmission Date: 20230112
  Serious: Yes (Life-Threatening)
  Sender: FDA-Public Use
  Company Number: BR-002147023-NVSC2022BR220903

PATIENT

DRUGS (2)
  1. RUXOLITINIB [Suspect]
     Active Substance: RUXOLITINIB
     Indication: Myelofibrosis
     Dosage: 2 DOSAGE FORM, QD (MANUFACT.: SEP 2021)
     Route: 065
     Dates: start: 202104
  2. DEFERASIROX [Concomitant]
     Active Substance: DEFERASIROX
     Indication: Product used for unknown indication
     Dosage: UNK
     Route: 065

REACTIONS (16)
  - Drug ineffective [Unknown]
  - Fatigue [Unknown]
  - Malaise [Unknown]
  - Pyrexia [Unknown]
  - Abdominal pain [Unknown]
  - Abdominal distension [Unknown]
  - Feeling abnormal [Unknown]
  - Systemic inflammatory response syndrome [Unknown]
  - Product supply issue [Unknown]
  - White blood cell disorder [Unknown]
  - White blood cell count increased [Unknown]
  - Listless [Unknown]
  - Platelet count decreased [Unknown]
  - Chills [Unknown]
  - Somnolence [Unknown]
  - Hyperhidrosis [Unknown]

NARRATIVE: CASE EVENT DATE: 20210801
